FAERS Safety Report 11012575 (Version 1)
Quarter: 2015Q2

REPORT INFORMATION
  Report Type: Spontaneous
  Country: US (occurrence: None)
  Receive Date: 20150410
  Receipt Date: 20150410
  Transmission Date: 20150821
  Serious: No
  Sender: FDA-Public Use
  Company Number: None

PATIENT
  Age: 16 Year
  Sex: Female
  Weight: 68.04 kg

DRUGS (3)
  1. AMITRIPTYLINE [Suspect]
     Active Substance: AMITRIPTYLINE
     Indication: MIGRAINE
     Dosage: 1 PILL TAKEN BY MOUTH
     Route: 048
     Dates: start: 20140828, end: 20150409
  2. AMITRIPTYLINE [Suspect]
     Active Substance: AMITRIPTYLINE
     Indication: DEPRESSION
     Dosage: 1 PILL TAKEN BY MOUTH
     Route: 048
     Dates: start: 20140828, end: 20150409
  3. EXCEDRIN MIGRAINE [Concomitant]
     Active Substance: ACETAMINOPHEN\ASPIRIN\CAFFEINE

REACTIONS (8)
  - Food interaction [None]
  - Hot flush [None]
  - Heart rate increased [None]
  - Tremor [None]
  - Fatigue [None]
  - Somnolence [None]
  - Panic attack [None]
  - Loss of consciousness [None]

NARRATIVE: CASE EVENT DATE: 20150311
